FAERS Safety Report 7434442-7 (Version None)
Quarter: 2011Q2

REPORT INFORMATION
  Report Type: 
  Country: None (occurrence: None)
  Receive Date: 20110425
  Receipt Date: 20110418
  Transmission Date: 20111010
  Serious: Yes (Other)
  Sender: FDA-Public Use
  Company Number: FR-BRISTOL-MYERS SQUIBB COMPANY-15680366

PATIENT
  Age: 59 Year
  Sex: Female

DRUGS (5)
  1. TAXOL [Suspect]
     Indication: ENDOMETRIAL CANCER
  2. LEVOTHYROX [Concomitant]
  3. CARBOPLATIN [Suspect]
     Indication: ENDOMETRIAL CANCER
  4. TOPALGIC [Concomitant]
  5. COAPROVEL [Concomitant]

REACTIONS (1)
  - DERMATOMYOSITIS [None]
